FAERS Safety Report 5011077-7 (Version None)
Quarter: 2006Q2

REPORT INFORMATION
  Report Type: 
  Country: None (occurrence: None)
  Receive Date: 20060523
  Receipt Date: 20060520
  Transmission Date: 20061013
  Serious: Yes (Death)
  Sender: FDA-Public Use
  Company Number: 221185

PATIENT
  Age: 59 Year
  Sex: Male
  Weight: 156.7178 kg

DRUGS (10)
  1. AVASTIN [Suspect]
     Indication: COLORECTAL CANCER METASTATIC
     Dosage: 5 MG/KG Q2W INTRAVENOUS
     Route: 042
     Dates: start: 20050628
  2. IRINOTECAN HCL [Suspect]
     Indication: COLORECTAL CANCER METASTATIC
     Dosage: 330 MG Q2W INTRAVENOUS
     Route: 042
     Dates: start: 20050628
  3. LEUCOVORIN CALCIUM [Suspect]
     Indication: COLORECTAL CANCER METASTATIC
     Dosage: 365 MG Q2W INTRAVENOUS
     Route: 042
     Dates: start: 20050628
  4. FLUOROURACIL [Suspect]
     Indication: COLORECTAL CANCER METASTATIC
     Dosage: 400MG/M2 SINGLE IV BOLUS
     Route: 040
     Dates: start: 20050628
  5. FLUOROURACIL [Suspect]
     Indication: COLORECTAL CANCER METASTATIC
     Dosage: 400MG/M2 SINGLE IV BOLUS
     Route: 040
     Dates: start: 20050628
  6. VASOTEC [Concomitant]
  7. COUMADIN [Concomitant]
  8. EPREX [Concomitant]
  9. ADALAT XL (NIFEDIPINE) [Concomitant]
  10. HYDROCHLOROTHIAZIDE [Concomitant]

REACTIONS (1)
  - DEATH [None]
